FAERS Safety Report 13444054 (Version 1)
Quarter: 2017Q2

REPORT INFORMATION
  Report Type: Spontaneous
  Country: US (occurrence: US)
  Receive Date: 20170414
  Receipt Date: 20170414
  Transmission Date: 20170830
  Serious: Yes (Other)
  Sender: FDA-Public Use
  Company Number: US-NOVOPROD-534840

PATIENT
  Age: 44 Year
  Sex: Male

DRUGS (3)
  1. TRESIBA FLEXTOUCH U200 [Suspect]
     Active Substance: INSULIN DEGLUDEC
     Indication: TYPE 2 DIABETES MELLITUS
     Route: 058
     Dates: start: 20170131
  2. HUMALOG [Suspect]
     Active Substance: INSULIN LISPRO
     Indication: TYPE 2 DIABETES MELLITUS
     Route: 058
  3. AMITRIPTYLINE [Suspect]
     Active Substance: AMITRIPTYLINE
     Indication: DEPRESSION
     Dosage: UNK
     Route: 048
     Dates: end: 2017

REACTIONS (5)
  - Pain in extremity [Not Recovered/Not Resolved]
  - Fall [Recovered/Resolved]
  - Peripheral swelling [Not Recovered/Not Resolved]
  - Weight increased [Not Recovered/Not Resolved]
  - Dizziness [Recovered/Resolved]

NARRATIVE: CASE EVENT DATE: 201702
